FAERS Safety Report 8223006-3 (Version None)
Quarter: 2012Q1

REPORT INFORMATION
  Report Type: 
  Country: None (occurrence: None)
  Receive Date: 20120320
  Receipt Date: 20120312
  Transmission Date: 20120608
  Serious: Yes (Hospitalization, Other)
  Sender: FDA-Public Use
  Company Number: US-ASTRAZENECA-2011SE41519

PATIENT
  Age: 51 Year
  Sex: Female
  Weight: 86.2 kg

DRUGS (18)
  1. ZOLPIDEM TARTRATE [Concomitant]
     Route: 048
     Dates: start: 20090611
  2. NEXIUM [Suspect]
     Indication: GASTROOESOPHAGEAL REFLUX DISEASE
     Route: 048
     Dates: start: 20070901, end: 20100501
  3. NEXIUM [Suspect]
     Route: 048
     Dates: start: 20090611
  4. PEPCID [Concomitant]
  5. PHENYTEK [Concomitant]
  6. DIAZEPAM [Concomitant]
     Indication: ANXIETY
     Dates: start: 20050101
  7. LEVOTHYROXINE SODIUM [Concomitant]
     Indication: HYPERTHYROIDISM
  8. DIAZEPAM [Concomitant]
     Route: 048
     Dates: start: 20090610
  9. PRILOSEC [Concomitant]
  10. PREVACID [Concomitant]
  11. PHENYTEK [Concomitant]
     Indication: EPILEPSY
     Route: 048
     Dates: start: 20090613
  12. FUROSEMIDE [Concomitant]
     Dates: start: 20090611
  13. DIOVAN [Concomitant]
     Route: 048
     Dates: start: 20090610
  14. PROTONIX [Concomitant]
  15. BAYER [Concomitant]
     Route: 048
     Dates: start: 20090606
  16. LORTAB [Concomitant]
     Route: 048
     Dates: start: 20090610
  17. CUMIN THYROID [Concomitant]
     Route: 048
     Dates: start: 20090617
  18. MICARDIS [Concomitant]
     Indication: BLOOD PRESSURE

REACTIONS (6)
  - RADIUS FRACTURE [None]
  - UPPER LIMB FRACTURE [None]
  - FOOT FRACTURE [None]
  - FRACTURE [None]
  - PERIARTICULAR DISORDER [None]
  - OSTEOPOROSIS [None]
